FAERS Safety Report 21207103 (Version 1)
Quarter: 2022Q3

REPORT INFORMATION
  Report Type: Spontaneous
  Country: US (occurrence: None)
  Receive Date: 20220811
  Receipt Date: 20220811
  Transmission Date: 20221027
  Serious: Yes (Hospitalization)
  Sender: FDA-Public Use
  Company Number: None

PATIENT
  Age: 64 Year
  Sex: Female
  Weight: 104.19 kg

DRUGS (15)
  1. IBRANCE [Suspect]
     Active Substance: PALBOCICLIB
     Indication: Breast cancer female
     Dosage: OTHER FREQUENCY : 21DON7D OFF;?
     Route: 048
     Dates: start: 201704
  2. CITALOPRAM [Concomitant]
     Active Substance: CITALOPRAM HYDROBROMIDE
  3. FASLODEX [Concomitant]
     Active Substance: FULVESTRANT
  4. FENTANYL [Concomitant]
     Active Substance: FENTANYL
  5. GABAPENTIN [Concomitant]
     Active Substance: GABAPENTIN
  6. IBUPROFEN [Concomitant]
     Active Substance: IBUPROFEN
  7. LORAZEPAM [Concomitant]
     Active Substance: LORAZEPAM
  8. LOVENOX [Concomitant]
     Active Substance: ENOXAPARIN SODIUM
  9. MORPHINE [Concomitant]
  10. PREDNISONE [Concomitant]
  11. PROCHLORPERAZINE [Suspect]
     Active Substance: PROCHLORPERAZINE
  12. REXULTI [Concomitant]
     Active Substance: BREXPIPRAZOLE
  13. TRAZODONE [Concomitant]
     Active Substance: TRAZODONE HYDROCHLORIDE
  14. TYLENOL [Concomitant]
     Active Substance: ACETAMINOPHEN
  15. ZOLPIDEM [Concomitant]
     Active Substance: ZOLPIDEM TARTRATE

REACTIONS (2)
  - Fall [None]
  - Dizziness [None]
